FAERS Safety Report 6391047-7 (Version None)
Quarter: 2009Q4

REPORT INFORMATION
  Report Type: 
  Country: None (occurrence: None)
  Receive Date: 20091007
  Receipt Date: 20091002
  Transmission Date: 20100525
  Serious: Yes (Other)
  Sender: FDA-Public Use
  Company Number: US-TEVA-199587USA

PATIENT
  Sex: Female
  Weight: 78.088 kg

DRUGS (1)
  1. CLARAVIS [Suspect]
     Route: 048
     Dates: start: 20080415, end: 20081012

REACTIONS (1)
  - UNINTENDED PREGNANCY [None]
